FAERS Safety Report 24327450 (Version 2)
Quarter: 2024Q4

REPORT INFORMATION
  Report Type: Spontaneous
  Country: US (occurrence: US)
  Receive Date: 20240917
  Receipt Date: 20241003
  Transmission Date: 20250115
  Serious: No
  Sender: BAYER
  Company Number: US-BAYER-2024A130236

PATIENT
  Sex: Female

DRUGS (1)
  1. MIRENA [Suspect]
     Active Substance: LEVONORGESTREL
     Indication: Heavy menstrual bleeding
     Dosage: 20?G/DAY
     Route: 015
     Dates: start: 20240816

REACTIONS (7)
  - Post procedural haemorrhage [Not Recovered/Not Resolved]
  - Dizziness [None]
  - Oropharyngeal discomfort [None]
  - Abdominal pain upper [None]
  - Device issue [None]
  - Loss of personal independence in daily activities [None]
  - Abdominal distension [None]

NARRATIVE: CASE EVENT DATE: 20240101
